FAERS Safety Report 11290686 (Version 1)
Quarter: 2015Q3

REPORT INFORMATION
  Report Type: Spontaneous
  Country: US (occurrence: None)
  Receive Date: 20150720
  Receipt Date: 20150720
  Transmission Date: 20151125
  Serious: No
  Sender: FDA-Public Use
  Company Number: None

PATIENT
  Age: 65 Year
  Sex: Male

DRUGS (10)
  1. LIPITOR [Concomitant]
     Active Substance: ATORVASTATIN CALCIUM
  2. FINASTERIDE. [Concomitant]
     Active Substance: FINASTERIDE
  3. GRAPE SEED [Concomitant]
  4. ASPIRIN. [Concomitant]
     Active Substance: ASPIRIN
  5. FLAX SEED [Concomitant]
     Active Substance: FLAX SEED
  6. FISH OIL [Concomitant]
     Active Substance: FISH OIL
  7. COQ10 [Concomitant]
     Active Substance: UBIDECARENONE
  8. OXYBUTYNIN [Concomitant]
     Active Substance: OXYBUTYNIN
  9. SPRYCEL [Suspect]
     Active Substance: DASATINIB
     Indication: LEUKAEMIA
     Route: 048
     Dates: start: 20120808
  10. IMITREX [Concomitant]
     Active Substance: SUMATRIPTAN\SUMATRIPTAN SUCCINATE

REACTIONS (1)
  - Haematuria [None]

NARRATIVE: CASE EVENT DATE: 201208
